FAERS Safety Report 9471531 (Version 1)
Quarter: 2013Q3

REPORT INFORMATION
  Report Type: Spontaneous
  Country: US (occurrence: US)
  Receive Date: 20130822
  Receipt Date: 20130822
  Transmission Date: 20140515
  Serious: Yes (Other)
  Sender: FDA-Public Use
  Company Number: US-PFIZER INC-2013240752

PATIENT
  Age: 71 Year
  Sex: Male
  Weight: 100 kg

DRUGS (10)
  1. VIAGRA [Suspect]
     Indication: ERECTILE DYSFUNCTION
     Dosage: 100 MG, AS NEEDED
     Route: 048
  2. MONTELUKAST SODIUM [Interacting]
     Indication: RESPIRATORY DISORDER
     Dosage: 10 MG, 1X/DAY
  3. METFORMIN HCL [Interacting]
     Indication: DIABETES MELLITUS
     Dosage: 100 MG, 2X/DAY
  4. LISINOPRIL [Interacting]
     Indication: HYPERTENSION
     Dosage: 40 MG, 1X/DAY
  5. CARVEDILOL [Interacting]
     Indication: HYPERTENSION
     Dosage: 25 MG, 2X/DAY
     Route: 048
  6. FUROSEMIDE [Interacting]
     Indication: DIURETIC THERAPY
     Dosage: 40 MG, 1X/DAY
     Dates: start: 2013
  7. FUROSEMIDE [Interacting]
     Indication: HYPERTENSION
  8. ALLOPURINOL [Interacting]
     Indication: GOUT
     Dosage: 100 MG, 3X/DAY
     Route: 048
  9. POTASSIUM [Interacting]
     Indication: HYPERTENSION
     Dosage: 20 MEQ, 1X/DAY
     Route: 048
  10. HYDRALAZINE [Interacting]
     Indication: HYPERTENSION
     Dosage: 50 MG, 3X/DAY
     Route: 048

REACTIONS (5)
  - Diabetes mellitus [Unknown]
  - Hypertension [Unknown]
  - Drug interaction [Unknown]
  - Drug effect incomplete [Unknown]
  - Drug ineffective [Unknown]
